FAERS Safety Report 7736856-4 (Version None)
Quarter: 2011Q3

REPORT INFORMATION
  Report Type: 
  Country: None (occurrence: None)
  Receive Date: 20110908
  Receipt Date: 20110830
  Transmission Date: 20111222
  Serious: Yes (Other)
  Sender: FDA-Public Use
  Company Number: PHEH2011US02302

PATIENT
  Sex: Female

DRUGS (10)
  1. TOPROL-XL [Concomitant]
     Dosage: 50 MG, UNK
  2. NORCO [Concomitant]
     Dosage: UNK UKN, UNK
  3. PREVACID [Concomitant]
     Dosage: 30 MG, QD
  4. ESTRADERM [Suspect]
     Dosage: 0.05 MG, QW2
     Route: 062
     Dates: start: 19850101
  5. KLONOPIN [Suspect]
     Dosage: UNK UKN, UNK
  6. EYE DROPS [Concomitant]
     Dosage: UNK UKN, UNK
  7. ESTROGEN NOS [Suspect]
     Dosage: UNK UKN, UNK
     Route: 048
  8. PROGESTERONE [Suspect]
     Dosage: UNK UKN, UNK
     Route: 048
  9. TORSEMIDE [Concomitant]
     Dosage: UNK UKN, UNK
  10. ATIVAN [Concomitant]
     Dosage: 1 MG, PRN

REACTIONS (15)
  - LIVER DISORDER [None]
  - VISUAL IMPAIRMENT [None]
  - CARDIAC DISORDER [None]
  - BLOOD PRESSURE INCREASED [None]
  - INFECTION [None]
  - SPINAL DISORDER [None]
  - VEIN DISORDER [None]
  - FORMICATION [None]
  - PAIN IN EXTREMITY [None]
  - ALPHA-1 ANTI-TRYPSIN ABNORMAL [None]
  - PANCREATITIS [None]
  - HEPATIC ENZYME INCREASED [None]
  - SINUSITIS [None]
  - LIVER INJURY [None]
  - DRUG WITHDRAWAL SYNDROME [None]
